FAERS Safety Report 5926559-0 (Version None)
Quarter: 2008Q4

REPORT INFORMATION
  Report Type: 
  Country: None (occurrence: None)
  Receive Date: 20081022
  Receipt Date: 20081014
  Transmission Date: 20090506
  Serious: Yes (Hospitalization, Other)
  Sender: FDA-Public Use
  Company Number: US-ABBOTT-08P-163-0481436-00

PATIENT
  Sex: Male
  Weight: 97.61 kg

DRUGS (2)
  1. HUMIRA [Suspect]
     Indication: CROHN'S DISEASE
     Route: 058
     Dates: start: 20080801, end: 20081001
  2. PREDNISONE [Concomitant]
     Indication: CROHN'S DISEASE
     Dosage: 40 MG TAPER
     Route: 048
     Dates: start: 20080801

REACTIONS (4)
  - ASTHENIA [None]
  - CHEST PAIN [None]
  - CORONARY ARTERY OCCLUSION [None]
  - MYOCARDIAL INFARCTION [None]
